FAERS Safety Report 19544076 (Version 1)
Quarter: 2021Q3

REPORT INFORMATION
  Report Type: Spontaneous
  Country: SE (occurrence: SE)
  Receive Date: 20210713
  Receipt Date: 20210713
  Transmission Date: 20211014
  Serious: Yes (Other)
  Sender: FDA-Public Use
  Company Number: SE-PFIZER INC-2021793132

PATIENT
  Age: 38 Year
  Sex: Female
  Weight: 75 kg

DRUGS (1)
  1. SERTRALINE HCL [Suspect]
     Active Substance: SERTRALINE HYDROCHLORIDE
     Indication: CORTISOL DECREASED
     Dosage: 25 MG, 1X/DAY, 1/2 TABLET DAILY.
     Dates: start: 20170718, end: 20201207

REACTIONS (6)
  - Dizziness [Recovered/Resolved]
  - Off label use [Unknown]
  - Withdrawal syndrome [Recovered/Resolved]
  - Electric shock sensation [Recovered/Resolved]
  - Restless legs syndrome [Recovered/Resolved]
  - Sleep apnoea syndrome [Recovered/Resolved]

NARRATIVE: CASE EVENT DATE: 2017
